FAERS Safety Report 10807487 (Version 1)
Quarter: 2015Q1

REPORT INFORMATION
  Report Type: Spontaneous
  Country: US (occurrence: US)
  Receive Date: 20150217
  Receipt Date: 20150217
  Transmission Date: 20150721
  Serious: Yes (Other)
  Sender: FDA-Public Use
  Company Number: US-ABBVIE-08P-163-0470350-00

PATIENT
  Age: 50 Year
  Sex: Male
  Weight: 79.45 kg

DRUGS (1)
  1. HUMIRA [Suspect]
     Active Substance: ADALIMUMAB
     Indication: CROHN^S DISEASE
     Route: 058
     Dates: start: 200801, end: 20080724

REACTIONS (2)
  - Haemorrhage [Unknown]
  - Anal cancer [Not Recovered/Not Resolved]

NARRATIVE: CASE EVENT DATE: 200805
